FAERS Safety Report 15242699 (Version 3)
Quarter: 2018Q4

REPORT INFORMATION
  Report Type: Spontaneous
  Country: DE (occurrence: DE)
  Receive Date: 20180806
  Receipt Date: 20181012
  Transmission Date: 20190204
  Serious: Yes (Other)
  Sender: FDA-Public Use
  Company Number: DE-ASTELLAS-2018US034701

PATIENT
  Sex: Male
  Weight: 100 kg

DRUGS (24)
  1. CELLCEPT [Suspect]
     Active Substance: MYCOPHENOLATE MOFETIL\MYCOPHENOLATE MOFETIL HYDROCHLORIDE
     Indication: LIVER TRANSPLANT
     Dosage: 500 MG, TWICE DAILY, IN THE MORNING AND EVENING (1-0-1)
     Route: 065
  2. FUROSEMID                          /00032601/ [Concomitant]
     Active Substance: FUROSEMIDE
     Indication: PRODUCT USED FOR UNKNOWN INDICATION
     Dosage: 1 DF, ONCE DAILY IN THE MORNING (1-0-0)
     Route: 065
  3. PROPANOL [Concomitant]
     Active Substance: PROPRANOLOL HYDROCHLORIDE
     Indication: PRODUCT USED FOR UNKNOWN INDICATION
     Dosage: 0.5 DF, THRICE DAILY, MORNING MIDDAY EVENING
     Route: 065
  4. FENTAMAT [Concomitant]
     Indication: PRODUCT USED FOR UNKNOWN INDICATION
     Dosage: 37.5 ?G, CHANGE EVERY 72 HOURS (MORNING)
     Route: 065
  5. BETAVERT                           /00141802/ [Concomitant]
     Indication: PRODUCT USED FOR UNKNOWN INDICATION
     Dosage: 1 DF, TWICE DAILY  (1-0-1)
  6. NOVALGIN                           /00169801/ [Concomitant]
     Active Substance: ACETAMINOPHEN\CAFFEINE\PROPYPHENAZONE
     Indication: PRODUCT USED FOR UNKNOWN INDICATION
     Dosage: 20 UNKNOWN UNITS, AS NEEDED (MAX. 4X/DAY)
     Route: 065
  7. VIGANTOLETTEN [Concomitant]
     Active Substance: CHOLECALCIFEROL
     Indication: PRODUCT USED FOR UNKNOWN INDICATION
     Dosage: 2000 I E, ONCE DAILY AT MIDDAY
     Route: 065
  8. LANTUS [Concomitant]
     Active Substance: INSULIN GLARGINE
     Indication: PRODUCT USED FOR UNKNOWN INDICATION
     Dosage: 12 UNK, ONCE DAILY, EVENING
     Route: 065
  9. ACTRAPID [Concomitant]
     Active Substance: INSULIN HUMAN
     Indication: PRODUCT USED FOR UNKNOWN INDICATION
     Dosage: 14-10-12 UNK, THRICE DAILY, MORNING, MIDDAY, EVENING
     Route: 065
  10. CEFAZOLIN [Suspect]
     Active Substance: CEFAZOLIN
     Indication: PRODUCT USED FOR UNKNOWN INDICATION
     Dosage: UNK UNK, THRICE DAILY (EVERY EIGHT HOURS)
     Route: 042
  11. ALLOPURINOL. [Concomitant]
     Active Substance: ALLOPURINOL
     Indication: PRODUCT USED FOR UNKNOWN INDICATION
     Dosage: 1 DF, ONCE DAILY EVENING (0-0-1)
     Route: 065
  12. ULTIBRO [Concomitant]
     Active Substance: GLYCOPYRRONIUM\INDACATEROL
     Indication: PRODUCT USED FOR UNKNOWN INDICATION
     Dosage: 85UG/43. IKA, ONCE DAILY IN THE MORNING (1-0-0)
     Route: 065
  13. ADVAGRAF [Suspect]
     Active Substance: TACROLIMUS
     Dosage: 2 MG, ONCE DAILY IN THE MORNING (2-0-0)
     Route: 065
  14. ADVAGRAF [Suspect]
     Active Substance: TACROLIMUS
     Indication: LIVER TRANSPLANT
     Dosage: UNK UNK, TWICE DAILY
     Route: 048
     Dates: start: 2009
  15. EPOETIN ALFA [Concomitant]
     Active Substance: ERYTHROPOIETIN
     Indication: PRODUCT USED FOR UNKNOWN INDICATION
     Dosage: UNK UNK, TWICE WEEKLY THURSDAY, FRIDAY
     Route: 065
  16. DOCITON [Concomitant]
     Active Substance: PROPRANOLOL HYDROCHLORIDE
     Indication: PRODUCT USED FOR UNKNOWN INDICATION
     Dosage: 1 DF, THRICE DAILY (1-1-1)
  17. VITAMIN D                          /00107901/ [Concomitant]
     Active Substance: ERGOCALCIFEROL
     Indication: PRODUCT USED FOR UNKNOWN INDICATION
     Dosage: 1.000 IE, TWICE DAILY
     Route: 065
  18. CALCIUM [Concomitant]
     Active Substance: CALCIUM
     Indication: PRODUCT USED FOR UNKNOWN INDICATION
     Dosage: 1 DF, ONCE DAILY MORNING
     Route: 065
  19. URSOFALK [Concomitant]
     Active Substance: URSODIOL
     Indication: PRODUCT USED FOR UNKNOWN INDICATION
     Dosage: 500 MG, THRICE DAILY (1-1-1S)
     Route: 065
  20. OMEP                               /00661201/ [Concomitant]
     Active Substance: OMEPRAZOLE
     Indication: PRODUCT USED FOR UNKNOWN INDICATION
     Dosage: 1 DF, ONCE DAILY IN THE MORNING (1-0-0)
     Route: 065
  21. CANDESARTAN 1 A PHARMA [Concomitant]
     Active Substance: CANDESARTAN
     Indication: PRODUCT USED FOR UNKNOWN INDICATION
     Dosage: 0.5 DF, ONCE DAILY IN THE MORNING (0.5-0-0)
     Route: 065
  22. MAGNESIUM [Concomitant]
     Active Substance: MAGNESIUM
     Indication: PRODUCT USED FOR UNKNOWN INDICATION
     Dosage: 1 DF, ONCE DAILY EVENING (0-0-1)
     Route: 065
  23. LANTUS [Concomitant]
     Active Substance: INSULIN GLARGINE
     Dosage: 14 UNK, ONCE DAILY, EVENING (0-0-14)
     Route: 065
  24. FLUVASTATIN [Concomitant]
     Active Substance: FLUVASTATIN SODIUM
     Indication: PRODUCT USED FOR UNKNOWN INDICATION
     Dosage: 1 DF, ONCE DAILY (0-0-1)
     Route: 065

REACTIONS (29)
  - Pneumonia [Unknown]
  - Osteoporosis [Unknown]
  - Emphysema [Unknown]
  - Reactive gastropathy [Unknown]
  - Muscle twitching [Unknown]
  - Type 1 diabetes mellitus [Unknown]
  - Inappropriate schedule of product administration [Unknown]
  - Portal vein occlusion [Unknown]
  - Gastrointestinal angiodysplasia [Unknown]
  - Meniere^s disease [Unknown]
  - Obesity [Unknown]
  - Depression [Unknown]
  - Intervertebral disc degeneration [Unknown]
  - Atrial fibrillation [Unknown]
  - Pleural effusion [Unknown]
  - Cytomegalovirus colitis [Unknown]
  - Muscle spasms [Unknown]
  - Biliary anastomosis [Unknown]
  - Peripheral arterial occlusive disease [Unknown]
  - Tremor [Recovering/Resolving]
  - Cytomegalovirus infection [Unknown]
  - Diabetes mellitus [Unknown]
  - Reflux gastritis [Unknown]
  - Hyperthyroidism [Unknown]
  - Diverticulum intestinal [Unknown]
  - Anaemia [Unknown]
  - Chronic obstructive pulmonary disease [Unknown]
  - Gastric varices [Unknown]
  - Facial paresis [Unknown]

NARRATIVE: CASE EVENT DATE: 2010
